FAERS Safety Report 11939052 (Version 3)
Quarter: 2016Q1

REPORT INFORMATION
  Report Type: Spontaneous
  Country: US (occurrence: US)
  Receive Date: 20160122
  Receipt Date: 20160308
  Transmission Date: 20160526
  Serious: No
  Sender: FDA-Public Use
  Company Number: US-JNJFOC-20160115159

PATIENT
  Age: 70 Year
  Sex: Female
  Weight: 41.28 kg

DRUGS (19)
  1. DURAGESIC [Suspect]
     Active Substance: FENTANYL
     Indication: SPINAL FRACTURE
     Route: 062
  2. DURAGESIC [Suspect]
     Active Substance: FENTANYL
     Indication: INTERVERTEBRAL DISC DEGENERATION
     Route: 062
  3. TESTOSTERONE. [Concomitant]
     Active Substance: TESTOSTERONE
     Indication: HOT FLUSH
     Route: 065
  4. VALACYCLOVIR [Concomitant]
     Active Substance: VALACYCLOVIR HYDROCHLORIDE
     Indication: HERPES VIRUS INFECTION
     Route: 065
  5. ESCITALOPRAM [Concomitant]
     Active Substance: ESCITALOPRAM OXALATE
     Indication: DEPRESSION
     Route: 065
  6. LIPITOR [Concomitant]
     Active Substance: ATORVASTATIN CALCIUM
     Indication: BLOOD CHOLESTEROL INCREASED
     Route: 065
  7. DURAGESIC [Suspect]
     Active Substance: FENTANYL
     Indication: ARTHRITIS
     Route: 062
  8. HYDROCODONE [Concomitant]
     Active Substance: HYDROCODONE
     Indication: PAIN
     Dosage: 10/325 MG
     Route: 065
  9. DURAGESIC [Suspect]
     Active Substance: FENTANYL
     Indication: SPINAL FRACTURE
     Route: 062
  10. DEPO ESTRADIOL [Concomitant]
     Indication: HOT FLUSH
     Route: 065
  11. BUPROPION. [Concomitant]
     Active Substance: BUPROPION
     Indication: SMOKING CESSATION THERAPY
     Route: 065
  12. DURAGESIC [Suspect]
     Active Substance: FENTANYL
     Indication: SPINAL FRACTURE
     Route: 062
  13. DURAGESIC [Suspect]
     Active Substance: FENTANYL
     Indication: INTERVERTEBRAL DISC DEGENERATION
     Route: 062
  14. DURAGESIC [Suspect]
     Active Substance: FENTANYL
     Indication: ARTHRITIS
     Route: 062
  15. DURAGESIC [Suspect]
     Active Substance: FENTANYL
     Indication: INTERVERTEBRAL DISC DEGENERATION
     Route: 062
  16. DURAGESIC [Suspect]
     Active Substance: FENTANYL
     Indication: ARTHRITIS
     Route: 062
  17. TOPAMAX [Concomitant]
     Active Substance: TOPIRAMATE
     Indication: SEIZURE
     Route: 048
  18. VITAMIN B12 [Concomitant]
     Active Substance: CYANOCOBALAMIN
     Indication: ASTHENIA
     Route: 065
  19. ALBUTEROL. [Concomitant]
     Active Substance: ALBUTEROL
     Indication: CHRONIC OBSTRUCTIVE PULMONARY DISEASE
     Route: 065

REACTIONS (8)
  - Product quality issue [Unknown]
  - Pain [Not Recovered/Not Resolved]
  - Adverse drug reaction [Unknown]
  - Drug dose omission [Unknown]
  - Inappropriate schedule of drug administration [Unknown]
  - Withdrawal syndrome [Not Recovered/Not Resolved]
  - Drug ineffective [Unknown]
  - Underdose [Unknown]

NARRATIVE: CASE EVENT DATE: 201601
